FAERS Safety Report 5400829-7 (Version None)
Quarter: 2007Q3

REPORT INFORMATION
  Report Type: 
  Country: None (occurrence: None)
  Receive Date: 20070730
  Receipt Date: 20070718
  Transmission Date: 20080115
  Serious: Yes (Other)
  Sender: FDA-Public Use
  Company Number: GB-PFIZER INC-2007060612

PATIENT
  Age: 34 Year
  Sex: Female

DRUGS (3)
  1. GABAPENTIN [Suspect]
     Indication: PAIN
     Route: 048
     Dates: start: 20070501, end: 20070601
  2. CODEINE PHOSPHATE AND ACETAMINOPHEN [Concomitant]
  3. IBUPROFEN [Concomitant]

REACTIONS (2)
  - DYSPEPSIA [None]
  - GASTROOESOPHAGEAL REFLUX DISEASE [None]
